FAERS Safety Report 8249284-2 (Version None)
Quarter: 2012Q2

REPORT INFORMATION
  Report Type: 
  Country: None (occurrence: None)
  Receive Date: 20120402
  Receipt Date: 20120323
  Transmission Date: 20120825
  Serious: Yes (Hospitalization)
  Sender: FDA-Public Use
  Company Number: US-BAYER-2012-029247

PATIENT
  Age: 40 Year
  Sex: Female

DRUGS (6)
  1. DROSPIRENONE AND ETHINYL ESTRADIOL [Suspect]
  2. CYMBALTA [Concomitant]
     Dosage: 120 MG, QD
     Route: 048
     Dates: start: 20110109
  3. YASMIN [Suspect]
     Indication: HIRSUTISM
  4. YAZ [Suspect]
  5. ACTOS [Concomitant]
     Dosage: 30 MG, QD
     Dates: start: 20110109
  6. YASMIN [Suspect]
     Indication: MENSTRUAL CYCLE MANAGEMENT

REACTIONS (1)
  - PULMONARY EMBOLISM [None]
